FAERS Safety Report 9688102 (Version 2)
Quarter: 2013Q4

REPORT INFORMATION
  Report Type: Spontaneous
  Country: GB (occurrence: None)
  Receive Date: 20131112
  Receipt Date: 20131226
  Transmission Date: 20140711
  Serious: Yes (Death, Other)
  Sender: FDA-Public Use
  Company Number: 2013MPI00621

PATIENT
  Age: 28 Year
  Sex: Female

DRUGS (1)
  1. BRENTUXIMAB VEDOTIN (BRENTUXIMAB VEDOTIN) INJECTION [Suspect]
     Indication: HODGKIN^S DISEASE
     Dosage: UNK
     Dates: start: 2011, end: 2012

REACTIONS (2)
  - Emotional distress [None]
  - Disease progression [None]
